FAERS Safety Report 18667603 (Version 2)
Quarter: 2021Q1

REPORT INFORMATION
  Report Type: Spontaneous
  Country: US (occurrence: US)
  Receive Date: 20201228
  Receipt Date: 20210324
  Transmission Date: 20210419
  Serious: No
  Sender: FDA-Public Use
  Company Number: US-SA-2020SA372464

PATIENT
  Age: 48 Year
  Sex: Female

DRUGS (2)
  1. DUPIXENT [Suspect]
     Active Substance: DUPILUMAB
     Indication: SINUS POLYP DEGENERATION
  2. DUPIXENT [Suspect]
     Active Substance: DUPILUMAB
     Indication: NASAL POLYPS
     Dosage: 300 MG, QOW
     Route: 058
     Dates: start: 202011

REACTIONS (4)
  - Product use in unapproved indication [Unknown]
  - COVID-19 [Unknown]
  - SARS-CoV-2 test positive [Unknown]
  - Cough [Unknown]

NARRATIVE: CASE EVENT DATE: 2020
